FAERS Safety Report 7425355-5 (Version None)
Quarter: 2011Q2

REPORT INFORMATION
  Report Type: 
  Country: None (occurrence: None)
  Receive Date: 20110420
  Receipt Date: 20110405
  Transmission Date: 20111010
  Serious: Yes (Hospitalization)
  Sender: FDA-Public Use
  Company Number: PHHY2011FR29463

PATIENT
  Sex: Female

DRUGS (5)
  1. MICROPAKINE LP [Concomitant]
     Dosage: 750 MG, BID
  2. SABRIL [Concomitant]
     Dosage: 500 MG, UNK
  3. TEGRETOL [Suspect]
     Dosage: 200 MG, TID
  4. DEBRIDAT ^IBRAHIM^ [Concomitant]
  5. TEGRETOL [Suspect]
     Indication: GRAND MAL CONVULSION
     Dosage: 400 MG, TID

REACTIONS (6)
  - CONFUSIONAL STATE [None]
  - GENERAL PHYSICAL HEALTH DETERIORATION [None]
  - PETIT MAL EPILEPSY [None]
  - URINARY INCONTINENCE [None]
  - NYSTAGMUS [None]
  - HYPONATRAEMIA [None]
